FAERS Safety Report 5044421-5 (Version None)
Quarter: 2006Q3

REPORT INFORMATION
  Report Type: 
  Country: None (occurrence: None)
  Receive Date: 20060706
  Receipt Date: 20060630
  Transmission Date: 20061208
  Serious: Yes (Death, Hospitalization)
  Sender: FDA-Public Use
  Company Number: PHHO2006IT10671

PATIENT
  Age: 82 Year
  Sex: Male
  Weight: 74 kg

DRUGS (1)
  1. ICL670A [Suspect]
     Indication: BLOOD IRON INCREASED
     Dosage: 1500 MG, QD
     Route: 048
     Dates: start: 20060526

REACTIONS (5)
  - ABDOMINAL OPERATION [None]
  - ABDOMINAL PAIN [None]
  - ANAEMIA [None]
  - INTESTINAL INFARCTION [None]
  - OEDEMA [None]
